FAERS Safety Report 5155354-8 (Version None)
Quarter: 2006Q4

REPORT INFORMATION
  Report Type: 
  Country: None (occurrence: None)
  Receive Date: 20061121
  Receipt Date: 20060613
  Transmission Date: 20070319
  Serious: Yes (Death)
  Sender: FDA-Public Use
  Company Number: EE-ABBOTT-06P-221-0335874-00

PATIENT
  Sex: Male

DRUGS (8)
  1. RITONAVIR SOFT GELATIN CAPSULES [Suspect]
     Indication: HIV INFECTION
     Route: 048
     Dates: start: 20060509, end: 20060601
  2. ATAZANAVIR (REYATAZ) [Concomitant]
     Indication: HIV INFECTION
     Route: 048
     Dates: start: 20060509, end: 20060601
  3. LAMIVUDINE [Concomitant]
     Indication: HIV INFECTION
     Dates: start: 20060509, end: 20060601
  4. ZIDOVUDINE [Concomitant]
     Indication: DRUG USE FOR UNKNOWN INDICATION
     Dates: start: 20060509, end: 20060601
  5. AMOXICILLIN [Concomitant]
     Indication: ACUTE SINUSITIS
     Dates: start: 20060413, end: 20060505
  6. DICLOFENAC SODIUM [Concomitant]
     Indication: ACUTE SINUSITIS
     Dates: start: 20060417, end: 20060426
  7. ACETAMINOPHEN [Concomitant]
     Indication: ACUTE SINUSITIS
     Dates: start: 20060425, end: 20060502
  8. ZOPICLONE [Concomitant]
     Indication: ACUTE SINUSITIS
     Dates: start: 20060419, end: 20060508

REACTIONS (5)
  - GASTROENTERITIS [None]
  - MULTI-ORGAN FAILURE [None]
  - PANCREATITIS [None]
  - PANCYTOPENIA [None]
  - PNEUMONIA [None]
